FAERS Safety Report 23196523 (Version 1)
Quarter: 2023Q4

REPORT INFORMATION
  Report Type: Spontaneous
  Country: PL (occurrence: PL)
  Receive Date: 20231117
  Receipt Date: 20231117
  Transmission Date: 20240109
  Serious: Yes (Life-Threatening, Hospitalization)
  Sender: FDA-Public Use
  Company Number: PL-NOVOPROD-1090626

PATIENT
  Age: 29 Year
  Sex: Female

DRUGS (6)
  1. BUPROPION [Interacting]
     Active Substance: BUPROPION
     Indication: Obesity
     Dosage: 150 MG, QD(FOR FIRST 6 DAYS)
     Route: 048
  2. BUPROPION [Interacting]
     Active Substance: BUPROPION
     Dosage: 300 MG, QD
     Route: 048
  3. NALTREXONE [Interacting]
     Active Substance: NALTREXONE
     Indication: Obesity
     Dosage: 8 MG, BID
     Route: 048
  4. ONDANSETRON [Interacting]
     Active Substance: ONDANSETRON
     Indication: Prophylaxis of nausea and vomiting
     Dosage: 16 MG, QD
     Route: 048
  5. OZEMPIC [Interacting]
     Active Substance: SEMAGLUTIDE
     Indication: Obesity
     Dosage: 0.5 MG, QW
     Route: 048
  6. VORTIOXETINE [Interacting]
     Active Substance: VORTIOXETINE
     Indication: Obesity
     Dosage: 10 MG, QD (AFTER THE LAST MEAL)
     Route: 048

REACTIONS (6)
  - Serotonin syndrome [Recovering/Resolving]
  - Renal failure [Recovering/Resolving]
  - Myopathy [Recovering/Resolving]
  - Myoglobinuria [Recovering/Resolving]
  - Product use in unapproved indication [Unknown]
  - Drug interaction [Unknown]
